FAERS Safety Report 22021754 (Version 1)
Quarter: 2023Q1

REPORT INFORMATION
  Report Type: Spontaneous
  Country: US (occurrence: None)
  Receive Date: 20230219
  Receipt Date: 20230219
  Transmission Date: 20230417
  Serious: No
  Sender: FDA-Public Use
  Company Number: None

PATIENT
  Age: 40 Year
  Sex: Female
  Weight: 74.25 kg

DRUGS (1)
  1. AJOVY [Suspect]
     Active Substance: FREMANEZUMAB-VFRM
     Indication: Migraine
     Dosage: OTHER QUANTITY : 1 INJECTION(S);?OTHER FREQUENCY : 28 DAYS;?
     Route: 058
     Dates: start: 20200505

REACTIONS (4)
  - Dyspepsia [None]
  - Diarrhoea [None]
  - Nausea [None]
  - Weight increased [None]

NARRATIVE: CASE EVENT DATE: 20201215
